FAERS Safety Report 6090829-9 (Version None)
Quarter: 2009Q1

REPORT INFORMATION
  Report Type: 
  Country: None (occurrence: None)
  Receive Date: 20090223
  Receipt Date: 20090210
  Transmission Date: 20090719
  Serious: Yes (Death, Hospitalization)
  Sender: FDA-Public Use
  Company Number: KV200900170

PATIENT
  Age: 90 Year
  Sex: Female

DRUGS (8)
  1. ISOSORBIDE MONONITRATE [Suspect]
     Indication: ANGINA PECTORIS
     Dosage: 60 MG, QD, ORAL
     Route: 048
     Dates: start: 20080501, end: 20080901
  2. LISINOPRIL [Concomitant]
  3. SIMVASTATIN [Concomitant]
  4. ALDACTONE [Concomitant]
  5. AMARYL [Concomitant]
  6. METOPROLOL TARTRATE [Concomitant]
  7. BUMEX [Concomitant]
  8. MULTIVITAMIN /00831701/ (VITAMINIS NOS) [Concomitant]

REACTIONS (6)
  - ASTHENIA [None]
  - CARDIAC FAILURE CONGESTIVE [None]
  - DIZZINESS [None]
  - HYPOTENSION [None]
  - MUSCULAR WEAKNESS [None]
  - PRODUCT QUALITY ISSUE [None]
